FAERS Safety Report 8977368 (Version 1)
Quarter: 2012Q4

REPORT INFORMATION
  Report Type: 
  Country: US (occurrence: US)
  Receive Date: 20121219
  Receipt Date: 20121219
  Transmission Date: 20130627
  Serious: Yes (Other)
  Sender: FDA-Public Use
  Company Number: US-BAYER-2012-131760

PATIENT
  Age: 63 Year
  Sex: Female

DRUGS (1)
  1. STIVARGA [Suspect]
     Indication: COLON CANCER NOS
     Dosage: 160 mg (40 mg, 4 tablets), QD
     Route: 048
     Dates: start: 20121123, end: 20121205

REACTIONS (7)
  - Abasia [Recovering/Resolving]
  - Asthenia [Not Recovered/Not Resolved]
  - Disturbance in attention [Recovering/Resolving]
  - Confusional state [Recovering/Resolving]
  - Oedema peripheral [Not Recovered/Not Resolved]
  - Nail discolouration [Not Recovered/Not Resolved]
  - Stomatitis [Not Recovered/Not Resolved]
